FAERS Safety Report 24888635 (Version 1)
Quarter: 2025Q1

REPORT INFORMATION
  Report Type: Spontaneous
  Country: US (occurrence: US)
  Receive Date: 20250127
  Receipt Date: 20250127
  Transmission Date: 20250409
  Serious: No
  Sender: APOTEX
  Company Number: US-APOTEX-2025AP001107

PATIENT
  Age: 18 Year
  Sex: Female

DRUGS (10)
  1. BUSULFAN [Suspect]
     Active Substance: BUSULFAN
     Indication: Acute myeloid leukaemia
     Route: 065
  2. BUSULFAN [Suspect]
     Active Substance: BUSULFAN
     Indication: Atypical teratoid/rhabdoid tumour of CNS
  3. CYTARABINE [Suspect]
     Active Substance: CYTARABINE
     Indication: Acute myeloid leukaemia
     Route: 065
  4. CYTARABINE [Suspect]
     Active Substance: CYTARABINE
     Indication: Atypical teratoid/rhabdoid tumour of CNS
  5. FLUDARABINE [Suspect]
     Active Substance: FLUDARABINE PHOSPHATE
     Indication: Acute myeloid leukaemia
     Route: 065
  6. FLUDARABINE [Suspect]
     Active Substance: FLUDARABINE PHOSPHATE
     Indication: Atypical teratoid/rhabdoid tumour of CNS
  7. DAUNORUBICIN [Suspect]
     Active Substance: DAUNORUBICIN
     Indication: Acute myeloid leukaemia
     Route: 065
  8. DAUNORUBICIN [Suspect]
     Active Substance: DAUNORUBICIN
     Indication: Atypical teratoid/rhabdoid tumour of CNS
  9. ETOPOSIDE [Suspect]
     Active Substance: ETOPOSIDE
     Indication: Acute myeloid leukaemia
     Route: 065
  10. ETOPOSIDE [Suspect]
     Active Substance: ETOPOSIDE
     Indication: Atypical teratoid/rhabdoid tumour of CNS

REACTIONS (1)
  - Radiation alopecia [Unknown]
